FAERS Safety Report 9384895 (Version 1)
Quarter: 2013Q3

REPORT INFORMATION
  Report Type: Spontaneous
  Country: US (occurrence: US)
  Receive Date: 20130705
  Receipt Date: 20130705
  Transmission Date: 20140515
  Serious: No
  Sender: FDA-Public Use
  Company Number: US-PFIZER INC-2013198489

PATIENT
  Age: 65 Year
  Sex: Female
  Weight: 72.56 kg

DRUGS (2)
  1. CHANTIX [Suspect]
     Indication: SMOKING CESSATION THERAPY
     Dosage: UNK
     Route: 048
     Dates: start: 201301, end: 2013
  2. CHANTIX [Suspect]
     Dosage: 1 MG, 1X/DAY
     Route: 048
     Dates: start: 2013

REACTIONS (5)
  - Agitation [Unknown]
  - Irritability [Unknown]
  - Anger [Unknown]
  - Personality change [Unknown]
  - Aggression [Unknown]
